FAERS Safety Report 11598222 (Version 1)
Quarter: 2015Q4

REPORT INFORMATION
  Report Type: Spontaneous
  Country: US (occurrence: US)
  Receive Date: 20151006
  Receipt Date: 20151006
  Transmission Date: 20160304
  Serious: Yes (Other)
  Sender: FDA-Public Use
  Company Number: US-PERRIGO-15US010110

PATIENT
  Sex: Female

DRUGS (2)
  1. IBUPROFEN 200MG 647 [Suspect]
     Active Substance: IBUPROFEN
     Indication: ARTHRALGIA
     Dosage: 400 MG, PRN
     Route: 048
     Dates: start: 201509, end: 201509
  2. IBUPROFEN 200MG 647 [Suspect]
     Active Substance: IBUPROFEN
     Indication: TOOTHACHE

REACTIONS (2)
  - Drug ineffective [Unknown]
  - Hallucination [Recovered/Resolved]

NARRATIVE: CASE EVENT DATE: 201509
